FAERS Safety Report 13911064 (Version 1)
Quarter: 2017Q3

REPORT INFORMATION
  Report Type: Report from Study
  Country: US (occurrence: US)
  Receive Date: 20170828
  Receipt Date: 20170828
  Transmission Date: 20171127
  Serious: Yes (Hospitalization)
  Sender: FDA-Public Use
  Company Number: US-HORIZON-BUP-RAV-0059-2017

PATIENT
  Age: 0 Year
  Sex: Female

DRUGS (2)
  1. BUPHENYL [Suspect]
     Active Substance: SODIUM PHENYLBUTYRATE
     Indication: N-ACETYLGLUTAMATE SYNTHASE DEFICIENCY
  2. RAVICTI [Suspect]
     Active Substance: GLYCEROL PHENYLBUTYRATE
     Indication: N-ACETYLGLUTAMATE SYNTHASE DEFICIENCY

REACTIONS (1)
  - Drug ineffective [Unknown]
